FAERS Safety Report 9726831 (Version 1)
Quarter: 2013Q4

REPORT INFORMATION
  Report Type: Spontaneous
  Country: US (occurrence: US)
  Receive Date: 20131203
  Receipt Date: 20131203
  Transmission Date: 20140711
  Serious: No
  Sender: FDA-Public Use
  Company Number: US-NOVEN-13US006583

PATIENT
  Age: 54 Year
  Sex: Male

DRUGS (3)
  1. FENTANYL [Suspect]
     Indication: ANALGESIC THERAPY
     Dosage: 150 UG/HR
     Route: 062
  2. METHADONE [Concomitant]
     Indication: PRODUCT USED FOR UNKNOWN INDICATION
     Dosage: 80 MG, Q 8HR.
     Route: 048
  3. OXYCODONE [Concomitant]
     Indication: BREAKTHROUGH PAIN
     Dosage: 60 MG, Q4-6 HRS PRN
     Route: 048

REACTIONS (3)
  - Rash [Not Recovered/Not Resolved]
  - Drug administration error [Not Recovered/Not Resolved]
  - Product quality issue [Not Recovered/Not Resolved]
